FAERS Safety Report 8425430-2 (Version None)
Quarter: 2012Q2

REPORT INFORMATION
  Report Type: 
  Country: None (occurrence: None)
  Receive Date: 20120605
  Receipt Date: 20120605
  Transmission Date: 20120825
  Serious: No
  Sender: FDA-Public Use
  Company Number: None

PATIENT
  Sex: Male

DRUGS (3)
  1. RIBAVIRIN [Suspect]
     Indication: HEPATITIS C
     Dosage: 600 MG QAM + QPM*
     Dates: start: 20120313
  2. INCIVEK [Concomitant]
  3. PEGASYS [Suspect]
     Indication: HEPATITIS C
     Dosage: 180 MCG ONCE/WK SQ
     Route: 058
     Dates: start: 20120313

REACTIONS (4)
  - ABDOMINAL DISTENSION [None]
  - DIARRHOEA [None]
  - BODY TEMPERATURE INCREASED [None]
  - RETCHING [None]
